FAERS Safety Report 9704964 (Version 2)
Quarter: 2013Q4

REPORT INFORMATION
  Report Type: Report from Study
  Country: CN (occurrence: CN)
  Receive Date: 20131122
  Receipt Date: 20131210
  Transmission Date: 20140711
  Serious: Yes (Death, Other)
  Sender: FDA-Public Use
  Company Number: CN-ASTELLAS-2013US012326

PATIENT
  Sex: Male

DRUGS (1)
  1. ERLOTINIB TABLET [Suspect]
     Indication: NON-SMALL CELL LUNG CANCER
     Dosage: 150 MG, UID/QD
     Route: 048
     Dates: start: 20121009

REACTIONS (7)
  - Monoplegia [Unknown]
  - Malignant neoplasm progression [Fatal]
  - Gingival bleeding [Unknown]
  - Haemoptysis [Unknown]
  - Rash [Recovering/Resolving]
  - Back pain [Recovering/Resolving]
  - Cough [Unknown]
